FAERS Safety Report 6636002-4 (Version None)
Quarter: 2010Q1

REPORT INFORMATION
  Report Type: 
  Country: None (occurrence: None)
  Receive Date: 20100316
  Receipt Date: 20100308
  Transmission Date: 20100710
  Serious: Yes (Death, Hospitalization, Other)
  Sender: FDA-Public Use
  Company Number: US-BAXTER-2010BH001270

PATIENT
  Sex: Male

DRUGS (2)
  1. DIANEAL [Suspect]
     Indication: PERITONEAL DIALYSIS
     Route: 033
     Dates: start: 20090101, end: 20100301
  2. DIANEAL [Suspect]
     Route: 033
     Dates: start: 20081201

REACTIONS (7)
  - ARTERIOVENOUS FISTULA SITE INFECTION [None]
  - IMPAIRED GASTRIC EMPTYING [None]
  - NAUSEA [None]
  - PERITONITIS BACTERIAL [None]
  - RESPIRATORY ARREST [None]
  - SEPSIS [None]
  - VOMITING [None]
